FAERS Safety Report 25937282 (Version 1)
Quarter: 2025Q4

REPORT INFORMATION
  Report Type: Spontaneous
  Country: JP (occurrence: JP)
  Receive Date: 20251017
  Receipt Date: 20251017
  Transmission Date: 20260117
  Serious: Yes (Hospitalization)
  Sender: AMGEN
  Company Number: JP-AMGEN-JPNSP2025204427

PATIENT
  Age: 8 Decade
  Sex: Male
  Weight: 68.3 kg

DRUGS (6)
  1. BEVACIZUMAB [Suspect]
     Active Substance: BEVACIZUMAB
     Indication: Hepatocellular carcinoma
     Dosage: UNK
     Route: 065
  2. ATEZOLIZUMAB [Concomitant]
     Active Substance: ATEZOLIZUMAB
     Indication: Hepatocellular carcinoma
  3. FUROSEMIDE [Concomitant]
     Active Substance: FUROSEMIDE
     Dosage: 40 MILLIGRAM
  4. SPIRONOLACTONE [Concomitant]
     Active Substance: SPIRONOLACTONE
     Dosage: 25 MILLIGRAM
  5. TOLVAPTAN [Concomitant]
     Active Substance: TOLVAPTAN
     Dosage: 7.5 MILLIGRAM
  6. AMINO ACIDS [Concomitant]
     Active Substance: AMINO ACIDS
     Dosage: 13.5 MILLIGRAM

REACTIONS (5)
  - Biliary cyst [Unknown]
  - Vascular pseudoaneurysm [Recovered/Resolved]
  - Vascular pseudoaneurysm ruptured [Recovered/Resolved]
  - Tumour haemorrhage [Recovered/Resolved]
  - Off label use [Unknown]
